FAERS Safety Report 6139752-1 (Version None)
Quarter: 2009Q2

REPORT INFORMATION
  Report Type: 
  Country: None (occurrence: None)
  Receive Date: 20090401
  Receipt Date: 20090331
  Transmission Date: 20091009
  Serious: Yes (Other)
  Sender: FDA-Public Use
  Company Number: A0725128A

PATIENT
  Sex: Male
  Weight: 95.4 kg

DRUGS (5)
  1. LAPATINIB [Suspect]
     Dosage: 1500MG PER DAY
     Route: 048
     Dates: start: 20080404, end: 20080423
  2. CISPLATIN [Suspect]
     Dosage: 100MGM2 CYCLIC
     Route: 042
     Dates: start: 20080410, end: 20080423
  3. RADIOTHERAPY [Suspect]
     Route: 061
     Dates: start: 20080410, end: 20080423
  4. CANDESARTAN CILEXETIL [Concomitant]
     Indication: HYPERTENSION
     Dosage: 32MG PER DAY
     Route: 048
     Dates: start: 20060301
  5. CO-DYDRAMOL [Concomitant]
     Dosage: 2TAB AS REQUIRED
     Route: 048
     Dates: start: 20080301

REACTIONS (2)
  - ALANINE AMINOTRANSFERASE ABNORMAL [None]
  - BLOOD BILIRUBIN ABNORMAL [None]
